FAERS Safety Report 8062925-8 (Version None)
Quarter: 2012Q1

REPORT INFORMATION
  Report Type: 
  Country: None (occurrence: None)
  Receive Date: 20120123
  Receipt Date: 20120123
  Transmission Date: 20120608
  Serious: Yes (Other)
  Sender: FDA-Public Use
  Company Number: None

PATIENT
  Age: 37 Year
  Sex: Male
  Weight: 71 kg

DRUGS (1)
  1. OMNIPAQUE 140 [Suspect]
     Route: 042
     Dates: start: 20120121, end: 20120121

REACTIONS (4)
  - TACHYCARDIA [None]
  - HYPOTENSION [None]
  - CHEST DISCOMFORT [None]
  - CHILLS [None]
